FAERS Safety Report 7413940-6 (Version None)
Quarter: 2011Q2

REPORT INFORMATION
  Report Type: 
  Country: None (occurrence: None)
  Receive Date: 20110414
  Receipt Date: 20110411
  Transmission Date: 20111010
  Serious: Yes (Other)
  Sender: FDA-Public Use
  Company Number: 2008BI011466

PATIENT
  Age: 57 Year
  Sex: Female
  Weight: 68 kg

DRUGS (6)
  1. TYSABRI [Suspect]
     Route: 042
     Dates: start: 20091110
  2. AVONEX [Concomitant]
     Indication: MULTIPLE SCLEROSIS
     Route: 030
     Dates: start: 19960101
  3. TYSABRI [Suspect]
     Indication: MULTIPLE SCLEROSIS
     Route: 042
     Dates: start: 20060830, end: 20091005
  4. PROVIGIL [Concomitant]
     Indication: ASTHENIA
  5. 4 AMINOPYRIDINE [Concomitant]
  6. MINOCYCLINE [Concomitant]
     Indication: ROSACEA

REACTIONS (12)
  - HIGH DENSITY LIPOPROTEIN DECREASED [None]
  - ROSACEA [None]
  - ASTHENIA [None]
  - URINARY TRACT INFECTION [None]
  - FALL [None]
  - CONVULSION [None]
  - BLOOD CHOLESTEROL INCREASED [None]
  - IMPAIRED HEALING [None]
  - GAIT DISTURBANCE [None]
  - FATIGUE [None]
  - INSOMNIA [None]
  - BACK INJURY [None]
